FAERS Safety Report 4398402-5 (Version None)
Quarter: 2004Q3

REPORT INFORMATION
  Report Type: 
  Country: None (occurrence: None)
  Receive Date: 20040714
  Receipt Date: 20040714
  Transmission Date: 20050211
  Serious: Yes (Disabling)
  Sender: FDA-Public Use
  Company Number: None

PATIENT
  Sex: Female

DRUGS (5)
  1. LINEZOLID 600 MG PO BID [Suspect]
     Indication: SPINAL DISORDER
     Dosage: 600 MG PO BID
     Route: 048
     Dates: start: 20031001, end: 20040513
  2. LINEZOLID 600 MG PO BID [Suspect]
     Indication: STAPHYLOCOCCAL INFECTION
     Dosage: 600 MG PO BID
     Route: 048
     Dates: start: 20031001, end: 20040513
  3. NEURONTIN [Concomitant]
  4. MYACALCIN [Concomitant]
  5. SOTALOL HCL [Concomitant]

REACTIONS (5)
  - DRUG TOXICITY [None]
  - HYPOAESTHESIA [None]
  - OPTIC NEUROPATHY [None]
  - VISION BLURRED [None]
  - VISUAL ACUITY REDUCED [None]
